FAERS Safety Report 5787229-5 (Version None)
Quarter: 2008Q2

REPORT INFORMATION
  Report Type: 
  Country: None (occurrence: None)
  Receive Date: 20080623
  Receipt Date: 20080623
  Transmission Date: 20081010
  Serious: Yes (Other)
  Sender: FDA-Public Use
  Company Number: None

PATIENT
  Age: 46 Year
  Sex: Male
  Weight: 82.5547 kg

DRUGS (1)
  1. ALDARA [Suspect]
     Indication: HYPERKERATOSIS
     Dosage: SPOT TREATMENT 3 TIMES A WEEK TOP
     Route: 061
     Dates: start: 20080613, end: 20080620

REACTIONS (7)
  - ABDOMINAL PAIN UPPER [None]
  - APPLICATION SITE REACTION [None]
  - BLISTER [None]
  - CHEST PAIN [None]
  - DYSPNOEA [None]
  - INFLUENZA LIKE ILLNESS [None]
  - LYMPHADENOPATHY [None]
